FAERS Safety Report 8770246 (Version 1)
Quarter: 2012Q4

REPORT INFORMATION
  Report Type: 
  Country: IS (occurrence: IS)
  Receive Date: 20120906
  Receipt Date: 20120906
  Transmission Date: 20130627
  Serious: Yes (Hospitalization)
  Sender: FDA-Public Use
  Company Number: IS-PFIZER INC-2012215292

PATIENT
  Age: 85 Year
  Sex: Female

DRUGS (9)
  1. ATORVASTATIN CALCIUM [Suspect]
     Dosage: UNK
  2. WARFARIN [Concomitant]
  3. LEVOTHYROXINE [Concomitant]
  4. DIGOXIN [Concomitant]
  5. CAPTOPRIL [Concomitant]
     Dosage: UNK
     Dates: start: 1987
  6. METOPROLOL [Concomitant]
  7. AMILORIDE W/HYDROCHLOROTHIAZIDE [Concomitant]
  8. CLOMIPRAMINE [Concomitant]
  9. SPIRONOLACTONE [Concomitant]

REACTIONS (2)
  - Drug-induced liver injury [Unknown]
  - Jaundice [Unknown]
